FAERS Safety Report 7815212-4 (Version None)
Quarter: 2011Q4

REPORT INFORMATION
  Report Type: 
  Country: None (occurrence: None)
  Receive Date: 20111014
  Receipt Date: 20111007
  Transmission Date: 20120403
  Serious: Yes (Death, Other)
  Sender: FDA-Public Use
  Company Number: PR-AMGEN-PRISP2011045905

PATIENT
  Age: 78 Year
  Sex: Male

DRUGS (1)
  1. PROCRIT [Suspect]
     Indication: ANAEMIA
     Dosage: 400000 UNK, UNK
     Dates: end: 20100904

REACTIONS (8)
  - DIZZINESS [None]
  - NAUSEA [None]
  - ANXIETY [None]
  - ABDOMINAL DISCOMFORT [None]
  - PULMONARY EMBOLISM [None]
  - EMOTIONAL DISTRESS [None]
  - FEELING OF DESPAIR [None]
  - PAIN [None]
